FAERS Safety Report 7406200-0 (Version None)
Quarter: 2011Q2

REPORT INFORMATION
  Report Type: 
  Country: None (occurrence: None)
  Receive Date: 20110406
  Receipt Date: 20110406
  Transmission Date: 20111010
  Serious: No
  Sender: FDA-Public Use
  Company Number: None

PATIENT
  Age: 62 Year
  Sex: Male
  Weight: 88 kg

DRUGS (1)
  1. VARENICLINE [Suspect]
     Dosage: 1 MG BI D PO
     Route: 048
     Dates: start: 20110215, end: 20110313

REACTIONS (4)
  - DEPRESSION [None]
  - ANXIETY [None]
  - NIGHTMARE [None]
  - PARANOIA [None]
